FAERS Safety Report 10205477 (Version 4)
Quarter: 2014Q2

REPORT INFORMATION
  Report Type: Spontaneous
  Country: IT (occurrence: IT)
  Receive Date: 20140529
  Receipt Date: 20140618
  Transmission Date: 20141212
  Serious: Yes (Other)
  Sender: FDA-Public Use
  Company Number: IT-B.I. PHARMACEUTICALS,INC./RIDGEFIELD-2014-BI-23048IT

PATIENT
  Age: 78 Year
  Sex: Male

DRUGS (8)
  1. PRADAXA [Suspect]
     Indication: ATRIAL FIBRILLATION
     Dosage: 220 MG
     Route: 048
     Dates: start: 20131210, end: 20140320
  2. RYTMONORM [Concomitant]
     Dosage: FORMULATION: CAPSULE HARDGELATIN, LONG ACTING
     Route: 048
  3. LOBIVON [Concomitant]
     Route: 065
  4. TAREG [Concomitant]
     Route: 048
  5. NORVASC [Concomitant]
     Route: 048
  6. PROSCAR [Concomitant]
     Route: 048
  7. URODIE [Concomitant]
     Route: 048
  8. LONGASTATINA [Concomitant]
     Dosage: FORMULATION: POWDER AND SOLVENT FOR SUSPENSION FOR INJECTION
     Route: 065

REACTIONS (3)
  - Constipation [Recovered/Resolved]
  - Abdominal pain upper [Recovered/Resolved]
  - Abdominal pain upper [Recovered/Resolved]
